FAERS Safety Report 8097844-4 (Version None)
Quarter: 2012Q1

REPORT INFORMATION
  Report Type: 
  Country: None (occurrence: None)
  Receive Date: 20120128
  Receipt Date: 20110805
  Transmission Date: 20120608
  Serious: No
  Sender: FDA-Public Use
  Company Number: US-ABBOTT-11P-163-0844551-00

PATIENT
  Age: 42 Year
  Sex: Male

DRUGS (7)
  1. IMURAN [Concomitant]
     Indication: CROHN'S DISEASE
  2. ZOLOFT [Concomitant]
     Indication: DEPRESSION
  3. OMEPRAZOLE [Concomitant]
     Indication: PRODUCT USED FOR UNKNOWN INDICATION
     Dosage: OTC
  4. UNKNOWN SUPPLEMENTS [Concomitant]
     Indication: PRODUCT USED FOR UNKNOWN INDICATION
     Dosage: OTC
  5. ALLEGRA [Concomitant]
     Indication: PRODUCT USED FOR UNKNOWN INDICATION
     Dosage: OTC
  6. HUMIRA [Suspect]
     Indication: CROHN'S DISEASE
     Dates: start: 20110616
  7. BONIVA [Concomitant]
     Indication: OSTEOPOROSIS
     Dosage: UNKNOWN COMMON DOSE

REACTIONS (5)
  - DRUG INEFFECTIVE [None]
  - DIARRHOEA [None]
  - SINUS CONGESTION [None]
  - ABNORMAL DREAMS [None]
  - PAIN [None]
